FAERS Safety Report 5881010-4 (Version None)
Quarter: 2008Q3

REPORT INFORMATION
  Report Type: 
  Country: None (occurrence: None)
  Receive Date: 20080912
  Receipt Date: 20080616
  Transmission Date: 20090109
  Serious: No
  Sender: FDA-Public Use
  Company Number: US-ABBOTT-08P-163-0457872-00

PATIENT
  Sex: Female
  Weight: 72.64 kg

DRUGS (8)
  1. HUMIRA [Suspect]
     Indication: RHEUMATOID ARTHRITIS
     Route: 058
     Dates: start: 20050801
  2. HYDROXYCHLOROQUINE [Concomitant]
     Indication: RHEUMATOID ARTHRITIS
     Route: 048
     Dates: end: 20080514
  3. METHYLPREDNISOLONE 16MG TAB [Concomitant]
     Indication: RHEUMATOID ARTHRITIS
     Route: 048
     Dates: start: 20080401
  4. PRAVASTATIN [Concomitant]
     Indication: BLOOD CHOLESTEROL INCREASED
     Dosage: 40 MG DAILY AT BED TIME
     Route: 048
     Dates: start: 20080401
  5. IRBESARTAN [Concomitant]
     Indication: HYPERTENSION
     Dosage: 150 MG IN THE MORNING
     Route: 048
  6. NADOLOL [Concomitant]
     Indication: HYPERTENSION
     Dosage: 40 MG AT BED TIME
     Route: 048
     Dates: start: 20080101
  7. VENLAFAXINE HCL [Concomitant]
     Indication: DEPRESSION
     Dosage: 75 MG DAILY; VARIED DOSES OVER THE YEARS
     Route: 048
     Dates: start: 20080401
  8. ACEMETACIN [Concomitant]
     Indication: MINERAL SUPPLEMENTATION
     Dosage: 35 MG WEEKLY
     Route: 048

REACTIONS (4)
  - ARTERIOSCLEROTIC RETINOPATHY [None]
  - EYE DISORDER [None]
  - MYODESOPSIA [None]
  - VISUAL FIELD DEFECT [None]
